FAERS Safety Report 9630860 (Version 2)
Quarter: 2013Q4

REPORT INFORMATION
  Report Type: Spontaneous
  Country: BE (occurrence: BE)
  Receive Date: 20131018
  Receipt Date: 20131118
  Transmission Date: 20140711
  Serious: Yes (Hospitalization)
  Sender: FDA-Public Use
  Company Number: BE-JNJFOC-20131008195

PATIENT
  Age: 75 Year
  Sex: Female

DRUGS (12)
  1. XARELTO [Suspect]
     Indication: CEREBROVASCULAR ACCIDENT PROPHYLAXIS
     Route: 048
     Dates: start: 20130801, end: 20130820
  2. XARELTO [Suspect]
     Indication: ATRIAL FIBRILLATION
     Route: 048
     Dates: start: 20130801, end: 20130820
  3. TERAZOSIN [Concomitant]
     Indication: HYPERTENSION
     Route: 048
  4. ZESTRIL [Concomitant]
     Indication: CARDIAC FAILURE
     Route: 048
  5. AMLOR [Concomitant]
     Indication: HYPERTENSION
     Route: 065
  6. ELTHYRONE [Concomitant]
     Indication: HYPERTHYROIDISM
     Route: 048
  7. BURINEX [Concomitant]
     Indication: ACUTE PULMONARY OEDEMA
     Route: 048
  8. ISOTEN [Concomitant]
     Indication: PRODUCT USED FOR UNKNOWN INDICATION
     Route: 048
  9. LANOXIN [Concomitant]
     Indication: ATRIAL FIBRILLATION
     Route: 048
  10. NOVONORM [Concomitant]
     Route: 048
  11. SYMBICORT [Concomitant]
     Route: 065
  12. ATROVENT [Concomitant]
     Dosage: 2-3 TIMES
     Route: 065

REACTIONS (2)
  - Haemorrhagic anaemia [Unknown]
  - Haemorrhagic erosive gastritis [Unknown]
